FAERS Safety Report 15656085 (Version 1)
Quarter: 2018Q4

REPORT INFORMATION
  Report Type: Spontaneous
  Country: US (occurrence: US)
  Receive Date: 20181115
  Receipt Date: 20181115
  Transmission Date: 20190205
  Serious: No
  Sender: FDA-Public Use
  Company Number: None

PATIENT
  Age: 80 Year
  Sex: Female

DRUGS (2)
  1. SIMPONI [Suspect]
     Active Substance: GOLIMUMAB
     Indication: RHEUMATOID ARTHRITIS
     Dosage: INJECT 50MG SUBCUTANEOUSLY EVERY MONTH AS DIRECTED
     Route: 058
     Dates: start: 201309
  2. SIMPONI [Suspect]
     Active Substance: GOLIMUMAB
     Indication: RHEUMATOID ARTHRITIS

REACTIONS (7)
  - Device malfunction [None]
  - Skin laceration [None]
  - Dysphonia [None]
  - Incorrect dose administered [None]
  - Haemorrhage [None]
  - Urinary tract infection [None]
  - Device breakage [None]
